FAERS Safety Report 11062304 (Version 1)
Quarter: 2015Q2

REPORT INFORMATION
  Report Type: Spontaneous
  Country: FR (occurrence: FR)
  Receive Date: 20150424
  Receipt Date: 20150424
  Transmission Date: 20150821
  Serious: Yes (Death, Life-Threatening)
  Sender: FDA-Public Use
  Company Number: FR-NOVOPROD-446531

PATIENT
  Age: 62 Year
  Sex: Male

DRUGS (8)
  1. OCTAPLEX [Suspect]
     Active Substance: COAGULATION FACTOR IX HUMAN\COAGULATION FACTOR VII HUMAN\COAGULATION FACTOR X HUMAN\PROTEIN C\PROTEIN S HUMAN\PROTHROMBIN
     Indication: PROTHROMBIN TIME RATIO DECREASED
     Dosage: 1000 IU, QD
     Route: 042
     Dates: start: 20141206, end: 20141206
  2. KARDEGIC [Concomitant]
     Active Substance: ASPIRIN LYSINE
     Dosage: 75 MG, QD
     Route: 065
  3. LASILIX                            /00032601/ [Concomitant]
     Active Substance: FUROSEMIDE
     Dosage: 40 MG, QD
     Route: 065
  4. INEXIUM                            /01479302/ [Concomitant]
     Active Substance: ESOMEPRAZOLE MAGNESIUM
     Dosage: 20 MG, QD
     Route: 065
  5. TAHOR [Concomitant]
     Active Substance: ATORVASTATIN CALCIUM
     Dosage: 10 MG, QD
     Route: 065
  6. NOVOSEVEN [Suspect]
     Active Substance: COAGULATION FACTOR VIIA RECOMBINANT HUMAN
     Indication: FACTOR VII DEFICIENCY
     Dosage: 2 MG, QD
     Route: 042
     Dates: start: 20141207, end: 20141207
  7. FUMAFER [Concomitant]
     Active Substance: FERROUS FUMARATE
     Dosage: 66 MG, QD
     Route: 065
  8. RAMIPRIL. [Concomitant]
     Active Substance: RAMIPRIL
     Dosage: 2.5 MG, QD
     Route: 065

REACTIONS (7)
  - Cardio-respiratory arrest [None]
  - Multi-organ disorder [None]
  - Hepatic failure [None]
  - Endocarditis enterococcal [None]
  - Coronary artery thrombosis [Fatal]
  - Coronary bypass thrombosis [Fatal]
  - Renal failure [None]

NARRATIVE: CASE EVENT DATE: 20141207
